FAERS Safety Report 9152237 (Version 1)
Quarter: 2013Q1

REPORT INFORMATION
  Report Type: Spontaneous
  Country: US (occurrence: US)
  Receive Date: 20130308
  Receipt Date: 20130308
  Transmission Date: 20140127
  Serious: No
  Sender: FDA-Public Use
  Company Number: US-ASTRAZENECA-2013SE05913

PATIENT
  Age: 51 Year
  Sex: Female
  Weight: 88 kg

DRUGS (6)
  1. PRILOSEC OTC [Suspect]
     Indication: GASTROOESOPHAGEAL REFLUX DISEASE
     Route: 048
     Dates: start: 201109, end: 201207
  2. OMEPRAZOLE [Suspect]
     Indication: GASTROOESOPHAGEAL REFLUX DISEASE
     Dosage: 20 MG BID PRN
     Route: 048
     Dates: start: 201207, end: 201209
  3. NEXIUM [Suspect]
     Indication: GASTROOESOPHAGEAL REFLUX DISEASE
     Route: 048
     Dates: start: 201209
  4. ATENOLOL [Suspect]
     Indication: BLOOD PRESSURE
     Route: 048
  5. ASPIRIN [Concomitant]
     Indication: BLOOD PRESSURE ABNORMAL
  6. MULTIVITAMIN [Concomitant]
     Indication: SUPPLEMENTATION THERAPY

REACTIONS (3)
  - Weight loss poor [Unknown]
  - Depression [Unknown]
  - Drug ineffective [Unknown]
